FAERS Safety Report 11807961 (Version 1)
Quarter: 2015Q4

REPORT INFORMATION
  Report Type: Spontaneous
  Country: GB (occurrence: GB)
  Receive Date: 20151207
  Receipt Date: 20151207
  Transmission Date: 20160305
  Serious: Yes (Other)
  Sender: FDA-Public Use
  Company Number: GB-COL_21420_2015

PATIENT
  Age: 6 Year
  Sex: Male

DRUGS (1)
  1. COLGATE DURAPHAT [Suspect]
     Active Substance: SODIUM FLUORIDE
     Indication: PROPHYLAXIS
     Dosage: 0.25 ML
     Route: 048
     Dates: start: 20151110, end: 20151110

REACTIONS (2)
  - Lip swelling [Unknown]
  - Erythema [Unknown]

NARRATIVE: CASE EVENT DATE: 20151110
